FAERS Safety Report 7774875-2 (Version None)
Quarter: 2011Q3

REPORT INFORMATION
  Report Type: 
  Country: None (occurrence: None)
  Receive Date: 20110921
  Receipt Date: 20110912
  Transmission Date: 20111222
  Serious: Yes (Other)
  Sender: FDA-Public Use
  Company Number: 2011MA013594

PATIENT
  Age: 53 Year
  Sex: Female

DRUGS (6)
  1. CHLORAMPHENICOL [Suspect]
     Indication: OCULAR HYPERAEMIA
     Dates: start: 20110706
  2. ENALAPRIL MALEATE [Concomitant]
  3. NAPROXEN [Suspect]
     Indication: JOINT INJURY
     Dosage: 500 MG; BID; PO
     Route: 048
     Dates: start: 20110619, end: 20110630
  4. BENDROFLUMETHIAZIDE [Concomitant]
  5. PREMPAK [Concomitant]
  6. HYPROMELLOSE [Concomitant]

REACTIONS (3)
  - MALAISE [None]
  - PANCYTOPENIA [None]
  - DIZZINESS [None]
